FAERS Safety Report 19829542 (Version 1)
Quarter: 2021Q3

REPORT INFORMATION
  Report Type: Spontaneous
  Country: US (occurrence: US)
  Receive Date: 20210914
  Receipt Date: 20210914
  Transmission Date: 20211014
  Serious: No
  Sender: FDA-Public Use
  Company Number: None

PATIENT
  Sex: Male

DRUGS (2)
  1. GLEOSTINE [Suspect]
     Active Substance: LOMUSTINE
     Indication: BRAIN NEOPLASM MALIGNANT
     Dosage: 6 CAPS  DAY 1  :Q6WK; PO FOR 6 CYCLES?
     Route: 048
     Dates: start: 20210515
  2. MATULANE [Concomitant]
     Active Substance: PROCARBAZINE HYDROCHLORIDE

REACTIONS (4)
  - Pain [None]
  - Hypoaesthesia [None]
  - Burning sensation [None]
  - Paraesthesia [None]
